FAERS Safety Report 6541922-5 (Version None)
Quarter: 2010Q1

REPORT INFORMATION
  Report Type: 
  Country: None (occurrence: None)
  Receive Date: 20100119
  Receipt Date: 20100114
  Transmission Date: 20100710
  Serious: Yes (Other)
  Sender: FDA-Public Use
  Company Number: NL-BAYER-200936571GPV

PATIENT
  Age: 74 Year
  Sex: Male

DRUGS (11)
  1. NEXAVAR [Suspect]
     Indication: HEPATIC CANCER METASTATIC
     Dosage: TOTAL DAILY DOSE: 800 MG  UNIT DOSE: 200 MG
     Route: 048
     Dates: start: 20090101
  2. NEXAVAR [Suspect]
     Dosage: TOTAL DAILY DOSE: 200 MG  UNIT DOSE: 200 MG
     Route: 048
     Dates: start: 20091001, end: 20091001
  3. NEXAVAR [Suspect]
     Route: 048
     Dates: start: 20091001, end: 20091001
  4. NEXAVAR [Suspect]
     Dosage: 3 TABLETS / DAY
     Route: 048
     Dates: start: 20090101, end: 20091207
  5. NEXAVAR [Suspect]
     Dosage: 1 TABL + 2 TABL
     Route: 048
     Dates: start: 20091207, end: 20091220
  6. NEXAVAR [Suspect]
     Dosage: TOTAL DAILY DOSE: 800 MG
     Route: 048
     Dates: start: 20091220, end: 20100113
  7. NEXAVAR [Suspect]
     Dosage: ONE DAY 800 MG / OTHER DAY 1000 MG
     Route: 048
     Dates: start: 20090101, end: 20090101
  8. NEXAVAR [Suspect]
     Dosage: TOTAL DAILY DOSE: 800 MG  UNIT DOSE: 200 MG
     Route: 048
     Dates: start: 20090824, end: 20090101
  9. NEXAVAR [Suspect]
     Dosage: UNIT DOSE: 200 MG
     Route: 048
     Dates: start: 20090817, end: 20090824
  10. NEXAVAR [Suspect]
     Dosage: TOTAL DAILY DOSE: 400 MG  UNIT DOSE: 200 MG
     Route: 048
     Dates: start: 20090724, end: 20090817
  11. LOSEC [Concomitant]

REACTIONS (12)
  - ABDOMINAL PAIN [None]
  - AGEUSIA [None]
  - ALOPECIA [None]
  - APHTHOUS STOMATITIS [None]
  - BLISTER [None]
  - DIARRHOEA [None]
  - FAECES HARD [None]
  - FEELING ABNORMAL [None]
  - HAEMORRHOIDS [None]
  - MALAISE [None]
  - PAIN IN EXTREMITY [None]
  - WEIGHT DECREASED [None]
